FAERS Safety Report 5265831-7 (Version None)
Quarter: 2007Q1

REPORT INFORMATION
  Report Type: 
  Country: None (occurrence: None)
  Receive Date: 20070313
  Receipt Date: 20070313
  Transmission Date: 20070707
  Serious: Yes (Disabling)
  Sender: FDA-Public Use
  Company Number: None

PATIENT
  Age: 1 Year
  Sex: Female
  Weight: 9.0719 kg

DRUGS (1)
  1. GLYCOLAX [Suspect]
     Indication: CONSTIPATION
     Dosage: 17 RAMS DAILY PO
     Route: 048
     Dates: start: 20031010, end: 20050506

REACTIONS (6)
  - AGGRESSION [None]
  - ANGER [None]
  - APHASIA [None]
  - DEVELOPMENTAL COORDINATION DISORDER [None]
  - SELF INJURIOUS BEHAVIOUR [None]
  - SPEECH DISORDER DEVELOPMENTAL [None]
